FAERS Safety Report 23279920 (Version 3)
Quarter: 2023Q4

REPORT INFORMATION
  Report Type: Spontaneous
  Country: JP (occurrence: JP)
  Receive Date: 20231209
  Receipt Date: 20231230
  Transmission Date: 20240110
  Serious: Yes (Other)
  Sender: FDA-Public Use
  Company Number: JP-UCBJ-CD202312384UCBPHAPROD

PATIENT
  Age: 5 Year
  Sex: Male

DRUGS (1)
  1. VIMPAT [Suspect]
     Active Substance: LACOSAMIDE
     Indication: Benign rolandic epilepsy
     Dosage: 2 MILLIGRAM/KILOGRAM, 2X/DAY (BID)
     Route: 048
     Dates: start: 20231026, end: 202311

REACTIONS (3)
  - Change in seizure presentation [Recovered/Resolved]
  - Therapeutic product ineffective [Unknown]
  - Treatment noncompliance [Unknown]
